FAERS Safety Report 9147280 (Version 1)
Quarter: 2013Q1

REPORT INFORMATION
  Report Type: Spontaneous
  Country: IT (occurrence: IT)
  Receive Date: 20130307
  Receipt Date: 20130307
  Transmission Date: 20140127
  Serious: Yes (Hospitalization, Other)
  Sender: FDA-Public Use
  Company Number: IT-ASTRAZENECA-2013SE13231

PATIENT
  Age: 18694 Day
  Sex: Male
  Weight: 86 kg

DRUGS (5)
  1. BRILIQUE [Suspect]
     Indication: ACUTE CORONARY SYNDROME
     Route: 048
     Dates: start: 20121206, end: 20121209
  2. DILATREND [Interacting]
     Indication: ISCHAEMIC HEART DISEASE PROPHYLAXIS
     Route: 048
     Dates: start: 20121209
  3. PROCORALAN [Interacting]
     Indication: CARDIAC FAILURE CHRONIC
     Route: 048
     Dates: start: 20121209, end: 20121209
  4. INEGY [Concomitant]
     Indication: HYPERCHOLESTEROLAEMIA
     Dosage: 10 MG + 20 MG TABLETS, ONCE DF.
     Route: 048
     Dates: start: 20121209, end: 20121210
  5. CLEXANE [Concomitant]
     Indication: THROMBOSIS PROPHYLAXIS
     Dosage: 4000 IU AXA INJECTABLE SOLUTION
     Route: 058
     Dates: start: 20121206, end: 20121211

REACTIONS (3)
  - Drug interaction [Unknown]
  - Sinus bradycardia [Unknown]
  - Sinus arrest [Recovered/Resolved]
